FAERS Safety Report 7243880-7 (Version None)
Quarter: 2011Q1

REPORT INFORMATION
  Report Type: 
  Country: None (occurrence: None)
  Receive Date: 20110125
  Receipt Date: 20110120
  Transmission Date: 20110831
  Serious: Yes (Other)
  Sender: FDA-Public Use
  Company Number: A0907716A

PATIENT

DRUGS (1)
  1. AMOXIL [Suspect]
     Route: 065

REACTIONS (2)
  - JAUNDICE [None]
  - CONTUSION [None]
